FAERS Safety Report 9054204 (Version 2)
Quarter: 2014Q2

REPORT INFORMATION
  Report Type: Spontaneous
  Country: US (occurrence: US)
  Receive Date: 20130208
  Receipt Date: 20140411
  Transmission Date: 20141212
  Serious: Yes (Hospitalization, Other)
  Sender: FDA-Public Use
  Company Number: US-ROCHE-621411

PATIENT
  Age: 15 Year
  Sex: Female
  Weight: 41.7 kg

DRUGS (2)
  1. ACCUTANE [Suspect]
     Indication: ACNE
     Route: 048
     Dates: start: 19970711, end: 19971211
  2. IBUPROFEN [Concomitant]

REACTIONS (17)
  - Colitis ulcerative [Unknown]
  - Inflammatory bowel disease [Unknown]
  - Rectal fissure [Unknown]
  - Depression [Unknown]
  - Back pain [Unknown]
  - Musculoskeletal disorder [Unknown]
  - Bone disorder [Unknown]
  - Blood triglycerides increased [Recovered/Resolved]
  - Headache [Unknown]
  - Ligament sprain [Unknown]
  - Liver function test abnormal [Recovered/Resolved]
  - Dry skin [Recovering/Resolving]
  - Chapped lips [Unknown]
  - Nausea [Recovered/Resolved]
  - Epistaxis [Unknown]
  - Visual impairment [Unknown]
  - Night blindness [Unknown]
